FAERS Safety Report 7906763-2 (Version None)
Quarter: 2011Q4

REPORT INFORMATION
  Report Type: 
  Country: None (occurrence: None)
  Receive Date: 20111110
  Receipt Date: 20111103
  Transmission Date: 20120403
  Serious: Yes (Hospitalization)
  Sender: FDA-Public Use
  Company Number: DE-BAXTER-2011BH028581

PATIENT
  Age: 73 Year
  Sex: Male
  Weight: 90 kg

DRUGS (3)
  1. GAMMAGARD LIQUID [Suspect]
     Indication: CHRONIC INFLAMMATORY DEMYELINATING POLYRADICULONEUROPATHY
     Route: 042
     Dates: start: 20080101, end: 20110801
  2. ENALAPRIL MALEATE [Suspect]
     Indication: HYPERTENSION
     Route: 065
  3. GAMMAGARD LIQUID [Suspect]
     Indication: OFF LABEL USE
     Route: 042
     Dates: start: 20080101, end: 20110801

REACTIONS (3)
  - PAIN IN EXTREMITY [None]
  - IRON DEFICIENCY ANAEMIA [None]
  - DEEP VEIN THROMBOSIS [None]
